FAERS Safety Report 8260869-X (Version None)
Quarter: 2012Q2

REPORT INFORMATION
  Report Type: 
  Country: None (occurrence: None)
  Receive Date: 20120402
  Receipt Date: 20120321
  Transmission Date: 20120825
  Serious: Yes (Other)
  Sender: FDA-Public Use
  Company Number: 2012-028175

PATIENT

DRUGS (1)
  1. BACTINE PAIN RELIEVING CLEANSING ANESTHETIC SPRAY (BENZALKONIUMCHLORID [Suspect]
     Dosage: ,ORAL
     Route: 048

REACTIONS (3)
  - ANXIETY [None]
  - ACCIDENTAL EXPOSURE [None]
  - HYPOAESTHESIA [None]
